FAERS Safety Report 4320827-4 (Version None)
Quarter: 2004Q1

REPORT INFORMATION
  Report Type: 
  Country: None (occurrence: None)
  Receive Date: 20040322
  Receipt Date: 20040322
  Transmission Date: 20041129
  Serious: Yes (Hospitalization)
  Sender: FDA-Public Use
  Company Number: None

PATIENT
  Age: 60 Year
  Sex: Female

DRUGS (5)
  1. ACETAMINOPHEN [Suspect]
     Dosage: ORAL
     Route: 048
  2. HYROXYCHLOROQUINE [Suspect]
  3. DILANTIN [Concomitant]
  4. UNKNOW ARTHRITIS MEDICATION [Concomitant]
  5. EYE DROPS FOR INFLAMMATION [Concomitant]

REACTIONS (11)
  - BLOOD GLUCOSE INCREASED [None]
  - BLOOD POTASSIUM DECREASED [None]
  - DRUG LEVEL INCREASED [None]
  - ELECTROCARDIOGRAM QRS COMPLEX PROLONGED [None]
  - ELECTROCARDIOGRAM QT CORRECTED INTERVAL PROLONGED [None]
  - GLUCOSE URINE PRESENT [None]
  - MYDRIASIS [None]
  - RETINAL DISORDER [None]
  - SOMNOLENCE [None]
  - URINE ANALYSIS [None]
  - VOMITING [None]
